FAERS Safety Report 22138612 (Version 1)
Quarter: 2023Q1

REPORT INFORMATION
  Report Type: Spontaneous
  Country: FR (occurrence: FR)
  Receive Date: 20230326
  Receipt Date: 20230326
  Transmission Date: 20230418
  Serious: Yes (Hospitalization)
  Sender: FDA-Public Use
  Company Number: None

PATIENT
  Age: 68 Year
  Sex: Female

DRUGS (4)
  1. OFLOXACIN [Suspect]
     Active Substance: OFLOXACIN
     Indication: Osteitis
     Dosage: 400 MG, QD
     Route: 048
     Dates: start: 20230203, end: 20230213
  2. OFLOXACIN [Suspect]
     Active Substance: OFLOXACIN
     Dosage: 200 MG, QD
     Route: 048
     Dates: start: 20230214, end: 20230224
  3. OFLOXACIN [Suspect]
     Active Substance: OFLOXACIN
     Dosage: 400 MG, QD
     Route: 048
     Dates: start: 20230224, end: 20230227
  4. FUSIDATE SODIUM [Suspect]
     Active Substance: FUSIDATE SODIUM
     Indication: Osteitis
     Dosage: 1500 MG,QD
     Route: 048
     Dates: start: 20230214, end: 20230227

REACTIONS (1)
  - Agranulocytosis [Recovered/Resolved]

NARRATIVE: CASE EVENT DATE: 20230227
